FAERS Safety Report 6076254-5 (Version None)
Quarter: 2009Q1

REPORT INFORMATION
  Report Type: 
  Country: None (occurrence: None)
  Receive Date: 20090212
  Receipt Date: 20090203
  Transmission Date: 20090719
  Serious: Yes (Hospitalization, Other)
  Sender: FDA-Public Use
  Company Number: FR-GILEAD-2007-0014416

PATIENT
  Sex: Male
  Weight: 60 kg

DRUGS (7)
  1. TRUVADA [Suspect]
     Indication: HIV INFECTION
     Route: 048
     Dates: start: 20070504
  2. SUSTIVA [Concomitant]
     Indication: HIV INFECTION
     Route: 048
     Dates: start: 20070504
  3. BECILAN [Concomitant]
     Route: 048
     Dates: start: 20070802, end: 20071108
  4. RIMIFON [Concomitant]
     Indication: TUBERCULOSIS
     Route: 048
     Dates: start: 20070323, end: 20071108
  5. IZILOX [Concomitant]
     Indication: TUBERCULOSIS
     Route: 048
     Dates: start: 20070405, end: 20071108
  6. LOVENOX [Concomitant]
  7. OMEPRAZOLE [Concomitant]

REACTIONS (3)
  - APLASIA [None]
  - LYMPHOMA [None]
  - PANCREATITIS ACUTE [None]
